FAERS Safety Report 6772792-8 (Version None)
Quarter: 2010Q2

REPORT INFORMATION
  Report Type: 
  Country: None (occurrence: None)
  Receive Date: 20100616
  Receipt Date: 20100608
  Transmission Date: 20101027
  Serious: Yes (Hospitalization)
  Sender: FDA-Public Use
  Company Number: GXKR2010IT06321

PATIENT
  Age: 74 Year
  Sex: Male

DRUGS (12)
  1. DICLOFENAC (NGX) [Suspect]
     Indication: ANALGESIC THERAPY
     Dosage: 100 MG
     Route: 065
  2. PREDNISONE [Interacting]
     Dosage: 40 MG/DAY
     Route: 048
  3. COLCHICINE [Interacting]
     Dosage: 1 MG
     Route: 048
  4. SALINE [Concomitant]
  5. CARVEDILOL [Concomitant]
     Dosage: 18.75 MG/DAY
     Route: 048
  6. SIMVASTATIN [Concomitant]
     Dosage: 20 MG/DAY
     Route: 048
  7. RAMIPRIL [Concomitant]
     Dosage: 5 MG/DAY
     Route: 048
  8. AMIODARONE [Concomitant]
     Dosage: 200 MG/DAY
     Route: 048
  9. METFORMIN HCL [Concomitant]
     Dosage: 750 MG/DAY
     Route: 048
  10. OMEPRAZOLE [Concomitant]
     Dosage: 20 MG/DAY
     Route: 048
  11. FUROSEMIDE [Concomitant]
     Dosage: 125 MG/DAY
     Route: 048
  12. WARFARIN [Concomitant]
     Dosage: 2.5 MG/DAY
     Route: 048

REACTIONS (8)
  - ABDOMINAL PAIN UPPER [None]
  - ASCITES [None]
  - CHEST PAIN [None]
  - COLOSTOMY [None]
  - DRUG INTERACTION [None]
  - LARGE INTESTINE PERFORATION [None]
  - LEUKOCYTOSIS [None]
  - RENAL FAILURE ACUTE [None]
